FAERS Safety Report 5556124-9 (Version None)
Quarter: 2007Q4

REPORT INFORMATION
  Report Type: 
  Country: None (occurrence: None)
  Receive Date: 20071213
  Receipt Date: 20071211
  Transmission Date: 20080405
  Serious: Yes (Death)
  Sender: FDA-Public Use
  Company Number: TW-MERCK-0712TWN00004

PATIENT
  Age: 84 Year
  Sex: Female
  Weight: 56 kg

DRUGS (1)
  1. COZAAR [Suspect]
     Indication: HYPERTENSION
     Route: 048
     Dates: start: 20070101, end: 20070101

REACTIONS (2)
  - DEATH [None]
  - GENERAL PHYSICAL HEALTH DETERIORATION [None]
